FAERS Safety Report 21659034 (Version 7)
Quarter: 2024Q3

REPORT INFORMATION
  Report Type: Spontaneous
  Country: US (occurrence: US)
  Receive Date: 20221129
  Receipt Date: 20240729
  Transmission Date: 20241016
  Serious: Yes (Disabling, Other)
  Sender: AMGEN
  Company Number: US-HORIZON THERAPEUTICS-HZN-2022-009121

PATIENT
  Age: 70 Year
  Sex: Female

DRUGS (36)
  1. TEPEZZA [Suspect]
     Active Substance: TEPROTUMUMAB-TRBW
     Indication: Endocrine ophthalmopathy
     Dosage: 686 MILLIGRAM, Q3WK (10MG/KG)
     Route: 042
     Dates: start: 20200630
  2. TEPEZZA [Suspect]
     Active Substance: TEPROTUMUMAB-TRBW
     Indication: Graves^ disease
     Dosage: 686 MILLIGRAM, Q3WK SECOND INFUSION (10MG/KG)
     Route: 042
     Dates: start: 20200721
  3. TEPEZZA [Suspect]
     Active Substance: TEPROTUMUMAB-TRBW
     Dosage: 1360 MILLIGRAM, Q3WK THIRD INFUSION 1360 MG
     Route: 042
     Dates: start: 20200811
  4. TEPEZZA [Suspect]
     Active Substance: TEPROTUMUMAB-TRBW
     Dosage: 1360 MILLIGRAM, Q3WK FOURTH INFUSION (20MG/KG)
     Route: 042
     Dates: start: 20200901
  5. TEPEZZA [Suspect]
     Active Substance: TEPROTUMUMAB-TRBW
     Dosage: 1400 MILLIGRAM, Q3WK FIFITH INFUSION (20MG/KG)
     Route: 042
     Dates: start: 20200922
  6. TEPEZZA [Suspect]
     Active Substance: TEPROTUMUMAB-TRBW
     Dosage: 1400 MILLIGRAM, Q3WK FIFITH INFUSION (20MG/KG)
     Route: 042
     Dates: start: 20201013
  7. TEPEZZA [Suspect]
     Active Substance: TEPROTUMUMAB-TRBW
     Dosage: 1400 MILLIGRAM, Q3WK SEVENTH INFUSION (20MG/KG)
     Route: 042
     Dates: start: 20201103
  8. TEPEZZA [Suspect]
     Active Substance: TEPROTUMUMAB-TRBW
     Dosage: 1340 MILLIGRAM, Q3WK LAST INFUSION (20MG/KG)
     Route: 042
     Dates: start: 20201124, end: 20201124
  9. COENZYME Q10 [Concomitant]
     Active Substance: DIETARY SUPPLEMENT\UBIDECARENONE
  10. METHIMAZOLE [Concomitant]
     Active Substance: METHIMAZOLE
  11. MONTELUKAST [Concomitant]
     Active Substance: MONTELUKAST SODIUM
     Dosage: 10 MG, QD
     Route: 048
  12. PANTOPRAZOLE [Concomitant]
     Active Substance: PANTOPRAZOLE
     Dosage: 40 MG
  13. PRAVASTATIN [Concomitant]
     Active Substance: PRAVASTATIN
  14. SELENIUM [Concomitant]
     Active Substance: SELENIUM
     Dosage: 200 UG
  15. VITAMIN D3 [Concomitant]
     Active Substance: CHOLECALCIFEROL
     Dosage: 200 UG
  16. TUMS [Concomitant]
     Active Substance: CALCIUM CARBONATE
     Dosage: 500MG, BID WITH FOOD
     Route: 048
  17. FERROUS SULFATE [Concomitant]
     Active Substance: FERROUS SULFATE
     Dosage: 325 MG, EVERY 2 WEEKS
  18. ESTRADIOL [Concomitant]
     Active Substance: ESTRADIOL
     Dosage: 0.25 MG, QD
  19. MELATONIN [Concomitant]
     Active Substance: MELATONIN
     Dosage: 5 MG, QD
  20. BENEFIBER [Concomitant]
     Active Substance: STARCH, WHEAT
  21. DICLOFENAC [Concomitant]
     Active Substance: DICLOFENAC
  22. CEFDINIR [Concomitant]
     Active Substance: CEFDINIR
     Dosage: 300 MILLIGRAM
     Route: 048
  23. METRONIDAZOLE [Concomitant]
     Active Substance: METRONIDAZOLE
     Dosage: 500 MILLIGRAM
     Route: 048
  24. METHYLPREDNISOLONE [Concomitant]
     Active Substance: METHYLPREDNISOLONE
     Dosage: 4 MILLIGRAM
     Route: 048
  25. AMOXICILLIN [Concomitant]
     Active Substance: AMOXICILLIN
     Dosage: 250 MILLIGRAM
  26. AMOXICILLIN [Concomitant]
     Active Substance: AMOXICILLIN
     Dosage: 875 MILLIGRAM
     Route: 048
  27. CLOTRIMAZOLE [Concomitant]
     Active Substance: CLOTRIMAZOLE
     Dosage: UNK (ONE PERCENT)
     Route: 061
  28. AMOXICILLIN\CLAVULANATE POTASSIUM [Concomitant]
     Active Substance: AMOXICILLIN\CLAVULANATE POTASSIUM
     Route: 048
  29. CYCLOBENZAPRINE [Concomitant]
     Active Substance: CYCLOBENZAPRINE
     Dosage: 10 MILLIGRAM
     Route: 048
  30. ZOLPIDEM TARTRATE [Concomitant]
     Active Substance: ZOLPIDEM TARTRATE
     Dosage: 5 MILLIGRAM
     Route: 048
  31. TRAZODONE [Concomitant]
     Active Substance: TRAZODONE HYDROCHLORIDE
  32. LIDOCAINE [Concomitant]
     Active Substance: LIDOCAINE
     Dosage: UNK (TWO PERCENT)
  33. FLUCONAZOLE [Concomitant]
     Active Substance: FLUCONAZOLE
     Dosage: 100 MILLIGRAM
     Route: 048
  34. MELOXICAM [Concomitant]
     Active Substance: MELOXICAM
     Dosage: 15 MILLIGRAM
     Route: 048
  35. NAPROXEN [Concomitant]
     Active Substance: NAPROXEN
     Dosage: 500 MILLIGRAM
     Route: 048
  36. BENZONATATE [Concomitant]
     Active Substance: BENZONATATE
     Dosage: 100 MILLIGRAM
     Route: 048

REACTIONS (24)
  - Disability [Unknown]
  - Deafness [Unknown]
  - Autoimmune thyroiditis [Unknown]
  - Pain [Unknown]
  - Anxiety [Unknown]
  - Discomfort [Unknown]
  - General physical health deterioration [Unknown]
  - Concomitant disease aggravated [Unknown]
  - Injury [Unknown]
  - Tremor [Unknown]
  - Nervousness [Unknown]
  - Insomnia [Unknown]
  - Myalgia [Unknown]
  - Constipation [Unknown]
  - Weight decreased [Unknown]
  - Nail disorder [Unknown]
  - Diarrhoea [Unknown]
  - Muscle spasms [Unknown]
  - Dry skin [Unknown]
  - Tinnitus [Unknown]
  - Fatigue [Unknown]
  - Diplopia [Unknown]
  - Economic problem [Unknown]
  - Product quality issue [Unknown]

NARRATIVE: CASE EVENT DATE: 20200101
